FAERS Safety Report 5780491-4 (Version None)
Quarter: 2008Q2

REPORT INFORMATION
  Report Type: 
  Country: None (occurrence: None)
  Receive Date: 20080620
  Receipt Date: 20080611
  Transmission Date: 20081010
  Serious: Yes (Other)
  Sender: FDA-Public Use
  Company Number: US-JNJFOC-20080205630

PATIENT
  Sex: Female
  Weight: 96.62 kg

DRUGS (5)
  1. REMICADE [Suspect]
     Indication: RHEUMATOID ARTHRITIS
     Dosage: DURATION: 3 YEARS
     Route: 042
  2. METHOTREXATE [Concomitant]
  3. MEGACE [Concomitant]
  4. IRON [Concomitant]
  5. FOLIC ACID [Concomitant]

REACTIONS (1)
  - ENDOMETRIAL CANCER [None]
